FAERS Safety Report 15487277 (Version 1)
Quarter: 2018Q4

REPORT INFORMATION
  Report Type: Spontaneous
  Country: CN (occurrence: CN)
  Receive Date: 20181011
  Receipt Date: 20181011
  Transmission Date: 20190205
  Serious: Yes (Other)
  Sender: FDA-Public Use
  Company Number: CN-GLAXOSMITHKLINE-CN2018GSK181010

PATIENT
  Age: 55 Year
  Sex: Male
  Weight: 80 kg

DRUGS (3)
  1. DEPAKINE [Suspect]
     Active Substance: VALPROATE SODIUM
     Indication: EPILEPSY
     Dosage: UNK UNK, QD
     Route: 048
  2. KEPPRA [Suspect]
     Active Substance: LEVETIRACETAM
     Indication: EPILEPSY
     Dosage: UNK UNK, QD
     Route: 048
  3. LAMICTAL [Suspect]
     Active Substance: LAMOTRIGINE
     Indication: EPILEPSY
     Dosage: UNK
     Route: 048

REACTIONS (5)
  - Petit mal epilepsy [Not Recovered/Not Resolved]
  - Depressed level of consciousness [Unknown]
  - Glassy eyes [Unknown]
  - Electroencephalogram abnormal [Not Recovered/Not Resolved]
  - Drug ineffective [Unknown]
